FAERS Safety Report 25064889 (Version 2)
Quarter: 2025Q1

REPORT INFORMATION
  Report Type: Spontaneous
  Country: PL (occurrence: PL)
  Receive Date: 20250311
  Receipt Date: 20250317
  Transmission Date: 20250408
  Serious: Yes (Other)
  Sender: TEVA
  Company Number: PL-TEVA-VS-3307144

PATIENT
  Age: 67 Year

DRUGS (2)
  1. ATORVASTATIN [Suspect]
     Active Substance: ATORVASTATIN
     Indication: Cardiac disorder
     Route: 065
  2. ROSUVASTATIN [Suspect]
     Active Substance: ROSUVASTATIN
     Indication: Cardiac disorder
     Route: 065

REACTIONS (2)
  - Necrotising myositis [Recovering/Resolving]
  - Autoimmune myositis [Recovering/Resolving]
